FAERS Safety Report 17968413 (Version 1)
Quarter: 2020Q3

REPORT INFORMATION
  Report Type: Spontaneous
  Country: US (occurrence: US)
  Receive Date: 20200701
  Receipt Date: 20200701
  Transmission Date: 20201103
  Serious: No
  Sender: FDA-Public Use
  Company Number: None

PATIENT
  Sex: Female

DRUGS (4)
  1. SILDENAFIL TAB 20MG [Concomitant]
     Active Substance: SILDENAFIL
     Dates: start: 20200621
  2. VENTOLIN HFA AER [Concomitant]
     Dates: start: 20200621
  3. OMEPRAZOLE CAP 20MG [Concomitant]
     Active Substance: OMEPRAZOLE
     Dates: start: 20200322
  4. AMBRISENTAN [Suspect]
     Active Substance: AMBRISENTAN
     Indication: PULMONARY HYPERTENSION
     Route: 048
     Dates: start: 20200609

REACTIONS (2)
  - Intentional product misuse [None]
  - Inappropriate schedule of product administration [None]
